FAERS Safety Report 7960337-6 (Version None)
Quarter: 2011Q4

REPORT INFORMATION
  Report Type: 
  Country: None (occurrence: None)
  Receive Date: 20111206
  Receipt Date: 20111206
  Transmission Date: 20120403
  Serious: Yes (Life-Threatening, Hospitalization)
  Sender: FDA-Public Use
  Company Number: PHHO2010JP10085

PATIENT
  Sex: Female
  Weight: 47 kg

DRUGS (13)
  1. AFINITOR [Suspect]
     Indication: METASTATIC GASTRIC CANCER
     Dosage: 10 MG, QD
     Route: 048
     Dates: start: 20100415, end: 20100701
  2. ENSURE [Concomitant]
  3. LANSOPRAZOLE [Concomitant]
  4. LASIX [Concomitant]
  5. NERISONA [Concomitant]
  6. AMARYL [Concomitant]
  7. VOLTAREN [Suspect]
     Dosage: UNK
     Route: 048
     Dates: start: 20061220, end: 20100701
  8. DEXALTIN [Concomitant]
  9. MOBIC [Suspect]
  10. HIRUDOID [Concomitant]
  11. ACETAMINOPHEN [Suspect]
  12. SELBEX [Concomitant]
  13. SODIUM BICARBONATE [Concomitant]

REACTIONS (7)
  - HAEMATEMESIS [None]
  - THERAPEUTIC EMBOLISATION [None]
  - BLOOD PRESSURE DECREASED [None]
  - TUMOUR HAEMORRHAGE [None]
  - MELAENA [None]
  - HAEMOSTASIS [None]
  - ANAEMIA [None]
